FAERS Safety Report 8772734 (Version 4)
Quarter: 2012Q4

REPORT INFORMATION
  Report Type: Report from Study
  Country: US (occurrence: US)
  Receive Date: 20120906
  Receipt Date: 20120923
  Transmission Date: 20130627
  Serious: Yes (Hospitalization)
  Sender: FDA-Public Use
  Company Number: US-ABBOTT-12P-163-0974065-00

PATIENT
  Age: 33 Year
  Sex: Male

DRUGS (5)
  1. HUMIRA 40 MG/0.8 ML PEN [Suspect]
     Indication: CROHN^S DISEASE
     Dates: start: 20110131
  2. HUMIRA 40 MG/0.8 ML PEN [Suspect]
     Dates: start: 20120820, end: 20120903
  3. LIALDA [Concomitant]
     Indication: CROHN^S DISEASE
  4. OMEPRAZOLE [Concomitant]
     Indication: PRODUCT USED FOR UNKNOWN INDICATION
     Dosage: 20mg every day
  5. MULTIVITAMIN [Concomitant]
     Indication: PRODUCT USED FOR UNKNOWN INDICATION
     Dosage: Every day

REACTIONS (13)
  - Haematochezia [Unknown]
  - Crohn^s disease [Unknown]
  - Diarrhoea [Unknown]
  - Vomiting [Unknown]
  - Pyrexia [Unknown]
  - Pain [Unknown]
  - Injection site pain [Unknown]
  - Injection site pain [Unknown]
  - Muscle spasms [Unknown]
  - Colitis [Unknown]
  - Injection site pain [Unknown]
  - Injection site pain [Unknown]
  - Injection site vesicles [Unknown]
